FAERS Safety Report 19854009 (Version 6)
Quarter: 2022Q1

REPORT INFORMATION
  Report Type: Spontaneous
  Country: CA (occurrence: CA)
  Receive Date: 20210920
  Receipt Date: 20220204
  Transmission Date: 20220423
  Serious: Yes (Hospitalization, Other)
  Sender: FDA-Public Use
  Company Number: CA-CELLTRION INC.-2021CA000209

PATIENT

DRUGS (5)
  1. INFLECTRA [Suspect]
     Active Substance: INFLIXIMAB-DYYB
     Indication: Ankylosing spondylitis
     Dosage: 5 MG/KG (600 MG EQUIVALENT), 0, 2, 6 THEN EVERY 8 WEEKS
     Route: 042
     Dates: start: 20201214, end: 20210706
  2. INFLECTRA [Suspect]
     Active Substance: INFLIXIMAB-DYYB
     Dosage: 5 MG/KG (600 MG EQUIVALENT), 0, 2, 6 THEN EVERY 8 WEEKS
     Route: 042
     Dates: start: 20210104
  3. INFLECTRA [Suspect]
     Active Substance: INFLIXIMAB-DYYB
     Dosage: 5 MG/KG (600 MG EQUIVALENT), 0, 2, 6 THEN EVERY 8 WEEKS
     Dates: start: 20210706
  4. INFLECTRA [Suspect]
     Active Substance: INFLIXIMAB-DYYB
     Dosage: 600 MG, EVERY 4 TO 6 WEEKS
     Route: 042
     Dates: start: 20210810
  5. INFLECTRA [Suspect]
     Active Substance: INFLIXIMAB-DYYB
     Dosage: 600 MG, EVERY 4 TO 6 WEEKS
     Route: 042
     Dates: start: 20210908

REACTIONS (10)
  - Pleurisy [Not Recovered/Not Resolved]
  - Burning sensation [Recovered/Resolved]
  - Chest discomfort [Recovered/Resolved]
  - Lupus-like syndrome [Unknown]
  - Chest pain [Recovering/Resolving]
  - Blood pressure diastolic increased [Recovering/Resolving]
  - Fall [Unknown]
  - Pharyngeal swelling [Recovering/Resolving]
  - Pruritus [Recovering/Resolving]
  - Off label use [Unknown]

NARRATIVE: CASE EVENT DATE: 20210104
